FAERS Safety Report 18409380 (Version 1)
Quarter: 2020Q4

REPORT INFORMATION
  Report Type: Spontaneous
  Country: IN (occurrence: IN)
  Receive Date: 20201021
  Receipt Date: 20201021
  Transmission Date: 20210114
  Serious: Yes (Other)
  Sender: FDA-Public Use
  Company Number: IN-SUN PHARMACEUTICAL INDUSTRIES LTD-2019R1-224639

PATIENT
  Age: 43 Year
  Sex: Female

DRUGS (2)
  1. DIVALPROATE SODIUM [Concomitant]
     Indication: BIPOLAR DISORDER
     Dosage: 1000 MG IN TWO DIVIDED DOSES
     Route: 065
  2. QUETIAPINE. [Suspect]
     Active Substance: QUETIAPINE
     Indication: BIPOLAR DISORDER
     Dosage: 600 MG IN TWO DIVIDED DOSES
     Route: 065

REACTIONS (1)
  - Hypersensitivity vasculitis [Recovered/Resolved]
